FAERS Safety Report 19001174 (Version 1)
Quarter: 2021Q1

REPORT INFORMATION
  Report Type: Spontaneous
  Country: GB (occurrence: GB)
  Receive Date: 20210312
  Receipt Date: 20210312
  Transmission Date: 20210420
  Serious: Yes (Other)
  Sender: FDA-Public Use
  Company Number: GB-TEVA-2021-GB-1888504

PATIENT
  Age: 61 Year
  Sex: Male
  Weight: 81 kg

DRUGS (6)
  1. RAMIPRIL. [Concomitant]
     Active Substance: RAMIPRIL
     Dosage: 1 DOSAGE FORMS DAILY; 1 CAPSULE ONCE A DAY
     Dates: start: 20201117
  2. NAPROXEN. [Suspect]
     Active Substance: NAPROXEN
     Dosage: 2 DOSAGE FORMS DAILY; TAKE ONE TWICE DAILY
     Dates: start: 20210129, end: 20210212
  3. PREDNISOLONE. [Concomitant]
     Active Substance: PREDNISOLONE
     Dosage: 4 DOSAGE FORMS DAILY; TAKE FOUR DAILY FOR 5 DAYS
     Dates: start: 20210209, end: 20210210
  4. AMLODIPINE [Concomitant]
     Active Substance: AMLODIPINE BESYLATE
     Dosage: 1 DOSAGE FORMS DAILY; 1 TABLET ONCE A DAY
     Dates: start: 20201117
  5. NAPROXEN. [Suspect]
     Active Substance: NAPROXEN
     Dosage: 500 MG
     Dates: start: 20210202
  6. ROSUVASTATIN. [Concomitant]
     Active Substance: ROSUVASTATIN
     Dosage: 1 DOSAGE FORMS DAILY; 1 TABLET DAILY
     Dates: start: 20201117

REACTIONS (1)
  - Swollen tongue [Recovered/Resolved]

NARRATIVE: CASE EVENT DATE: 20210202
